FAERS Safety Report 6237253-3 (Version None)
Quarter: 2009Q2

REPORT INFORMATION
  Report Type: 
  Country: None (occurrence: None)
  Receive Date: 20090619
  Receipt Date: 20090611
  Transmission Date: 20091009
  Serious: Yes (Other)
  Sender: FDA-Public Use
  Company Number: IT-ROCHE-637843

PATIENT
  Sex: Male

DRUGS (2)
  1. CELLCEPT [Suspect]
     Indication: RENAL TRANSPLANT
     Route: 065
  2. CYCLOSPORINE [Concomitant]
     Indication: RENAL TRANSPLANT
     Dosage: DRUG NAME :CICLOSPORIN/ UNKNOWN TRADE NAME. START DATE, DOSE AND FREQUENCY REPORTED AS UNKNOWN.
     Route: 065

REACTIONS (1)
  - OSTEONECROSIS [None]
